FAERS Safety Report 20488293 (Version 1)
Quarter: 2022Q1

REPORT INFORMATION
  Report Type: Spontaneous
  Country: IN (occurrence: IN)
  Receive Date: 20220218
  Receipt Date: 20220218
  Transmission Date: 20220424
  Serious: Yes (Hospitalization, Other)
  Sender: FDA-Public Use
  Company Number: IN-SUN PHARMACEUTICAL INDUSTRIES LTD-2022R1-326548

PATIENT
  Age: 29 Year
  Sex: Female

DRUGS (1)
  1. GLYBURIDE\METFORMIN [Suspect]
     Active Substance: GLYBURIDE\METFORMIN
     Indication: Diabetes mellitus
     Dosage: 5/400 MILLIGRAM
     Route: 048

REACTIONS (4)
  - Exposure during pregnancy [Unknown]
  - Hypertension [Unknown]
  - Oedema peripheral [Unknown]
  - Polyhydramnios [Unknown]
